FAERS Safety Report 12597078 (Version 1)
Quarter: 2016Q3

REPORT INFORMATION
  Report Type: Spontaneous
  Country: US (occurrence: None)
  Receive Date: 20160726
  Receipt Date: 20160726
  Transmission Date: 20161109
  Serious: Yes (Life-Threatening, Hospitalization, Disabling, Other)
  Sender: FDA-Public Use
  Company Number: None

PATIENT
  Age: 19 Year
  Sex: Male
  Weight: 109.77 kg

DRUGS (1)
  1. ABILIFY [Suspect]
     Active Substance: ARIPIPRAZOLE
     Indication: AFFECTIVE DISORDER
     Route: 048
     Dates: start: 20110715, end: 20160515

REACTIONS (6)
  - Gene mutation [None]
  - Tardive dyskinesia [None]
  - Polycythaemia vera [None]
  - Eating disorder [None]
  - Polycythaemia [None]
  - Weight increased [None]
